FAERS Safety Report 10447810 (Version 1)
Quarter: 2014Q3

REPORT INFORMATION
  Report Type: Spontaneous
  Country: JP (occurrence: JP)
  Receive Date: 20140911
  Receipt Date: 20140911
  Transmission Date: 20150326
  Serious: No
  Sender: FDA-Public Use
  Company Number: PHHY2010JP096966

PATIENT
  Age: 60 Year
  Sex: Male

DRUGS (6)
  1. TASIGNA [Suspect]
     Active Substance: NILOTINIB
     Dosage: 200 MG, IN 2 DIVIDED DOSES FOR 2 WEEK
     Dates: start: 20100302
  2. TASIGNA [Suspect]
     Active Substance: NILOTINIB
     Dosage: 200 MG, IN 2 DIVIDED DOSES
     Dates: start: 20100323
  3. TASIGNA [Suspect]
     Active Substance: NILOTINIB
     Dosage: 600 MG, ADMINISTRATED 200 MG TWICE IN THE MORNING AND 200 MG ONCE AFTER SUPPER (600 MG/DAY) FOR 15 D
     Dates: start: 20100406
  4. TASIGNA [Suspect]
     Active Substance: NILOTINIB
     Dosage: 800 MG, 200 MG TWICE IN THE MORNING AND 200 MG TWICE AFTER SUPPER (800MG/DAY) FOR 17 DAYS
     Dates: start: 20100420
  5. TASIGNA [Suspect]
     Active Substance: NILOTINIB
     Dosage: 200 MG, UNK
     Dates: start: 20100319
  6. TASIGNA [Suspect]
     Active Substance: NILOTINIB
     Indication: CHRONIC MYELOID LEUKAEMIA (IN REMISSION)
     Dosage: UNK UKN, UNK
     Dates: start: 20091026

REACTIONS (5)
  - Skin disorder [Unknown]
  - Rash [Unknown]
  - Malaise [Unknown]
  - Electrocardiogram QT prolonged [Unknown]
  - Burning sensation [Unknown]
